FAERS Safety Report 7920581-0 (Version None)
Quarter: 2011Q4

REPORT INFORMATION
  Report Type: 
  Country: None (occurrence: None)
  Receive Date: 20111117
  Receipt Date: 20111114
  Transmission Date: 20120403
  Serious: Yes (Hospitalization, Other)
  Sender: FDA-Public Use
  Company Number: PHHY2011CN100411

PATIENT
  Age: 11 Year
  Sex: Female

DRUGS (1)
  1. TRILEPTAL [Suspect]
     Indication: PARTIAL SEIZURES
     Dosage: 300 MG, BID
     Route: 048

REACTIONS (14)
  - SUICIDE ATTEMPT [None]
  - VOMITING [None]
  - ORAL DISCHARGE [None]
  - HYPOREFLEXIA [None]
  - SOMNOLENCE [None]
  - OVERDOSE [None]
  - HEART RATE INCREASED [None]
  - FATIGUE [None]
  - COMA [None]
  - TOXICITY TO VARIOUS AGENTS [None]
  - BODY TEMPERATURE DECREASED [None]
  - NYSTAGMUS [None]
  - PARALYSIS FLACCID [None]
  - BLOOD PRESSURE DECREASED [None]
